FAERS Safety Report 4312101-7 (Version None)
Quarter: 2004Q1

REPORT INFORMATION
  Report Type: 
  Country: None (occurrence: None)
  Receive Date: 20040303
  Receipt Date: 20040220
  Transmission Date: 20041129
  Serious: Yes (Hospitalization)
  Sender: FDA-Public Use
  Company Number: JP-JNJFOC-20040102849

PATIENT
  Age: 54 Year
  Sex: Female
  Weight: 57 kg

DRUGS (12)
  1. REMICADE [Suspect]
     Indication: RHEUMATOID ARTHRITIS
     Dosage: 3 MG/KG, 1 IN 1 AS NECESSARY, INTRAVENOUS DRIP
     Route: 041
     Dates: start: 20030815, end: 20030815
  2. REMICADE [Suspect]
     Indication: RHEUMATOID ARTHRITIS
     Dosage: 3 MG/KG, 1 IN 1 AS NECESSARY, INTRAVENOUS DRIP
     Route: 041
     Dates: start: 20030829, end: 20030829
  3. REMICADE [Suspect]
     Indication: RHEUMATOID ARTHRITIS
     Dosage: 3 MG/KG, 1 IN 1 AS NECESSARY, INTRAVENOUS DRIP
     Route: 041
     Dates: start: 20030926, end: 20030926
  4. REMICADE [Suspect]
     Indication: RHEUMATOID ARTHRITIS
     Dosage: 3 MG/KG, 1 IN 1 AS NECESSARY, INTRAVENOUS DRIP
     Route: 041
     Dates: start: 20031121, end: 20031121
  5. ARAVA [Suspect]
     Dosage: 100 MG, 1 IN 1 DAY, ORAL
     Route: 048
     Dates: start: 20040110, end: 20040112
  6. RHEUMATREX [Concomitant]
  7. PREDNISOLONE [Concomitant]
  8. LOXONINE (ALL OTHER THERAPEUTIC PRODUCTS) [Concomitant]
  9. ADOFEED (FLURBIPROFEN) [Concomitant]
  10. FOLIAMIN (FOLIC ACID) [Concomitant]
  11. SELBEX (TEPRENONE) [Concomitant]
  12. FAMOTIDINE [Concomitant]

REACTIONS (4)
  - DIARRHOEA [None]
  - DRUG INEFFECTIVE [None]
  - PYREXIA [None]
  - VOMITING [None]
